FAERS Safety Report 8519486-6 (Version None)
Quarter: 2012Q3

REPORT INFORMATION
  Report Type: 
  Country: None (occurrence: None)
  Receive Date: 20120718
  Receipt Date: 20120628
  Transmission Date: 20120928
  Serious: No
  Sender: FDA-Public Use
  Company Number: US-ASTRAZENECA-2012SE19807

PATIENT
  Age: 34 Year
  Sex: Female

DRUGS (2)
  1. NEXIUM [Suspect]
     Route: 048
  2. SEROQUEL XR [Suspect]
     Dosage: 300 MG TWICE EVERY EVENING
     Route: 048

REACTIONS (9)
  - BIPOLAR II DISORDER [None]
  - DRUG PRESCRIBING ERROR [None]
  - AGORAPHOBIA [None]
  - INTENTIONAL DRUG MISUSE [None]
  - BLOOD CHOLESTEROL INCREASED [None]
  - PANIC DISORDER [None]
  - DYSPEPSIA [None]
  - AFFECTIVE DISORDER [None]
  - ABDOMINAL DISCOMFORT [None]
